FAERS Safety Report 5691519-4 (Version None)
Quarter: 2008Q2

REPORT INFORMATION
  Report Type: 
  Country: None (occurrence: None)
  Receive Date: 20080402
  Receipt Date: 20080328
  Transmission Date: 20081010
  Serious: Yes (Death, Other)
  Sender: FDA-Public Use
  Company Number: PHHY2008JP02280

PATIENT
  Age: 54 Year
  Sex: Male

DRUGS (2)
  1. METHOTREXATE [Suspect]
     Indication: ALLOGENIC BONE MARROW TRANSPLANTATION THERAPY
     Dosage: SHORT-TERM THERAPY
  2. SANDIMMUNE [Suspect]
     Indication: BONE MARROW TRANSPLANT
     Dosage: 24 HOUR CONTINUOUS DRIP
     Route: 041

REACTIONS (10)
  - ALTERED STATE OF CONSCIOUSNESS [None]
  - BLOOD LACTATE DEHYDROGENASE INCREASED [None]
  - CARDIAC FAILURE [None]
  - GRAFT VERSUS HOST DISEASE [None]
  - PNEUMONIA [None]
  - RED BLOOD CELL SCHISTOCYTES PRESENT [None]
  - RENAL IMPAIRMENT [None]
  - REVERSIBLE POSTERIOR LEUKOENCEPHALOPATHY SYNDROME [None]
  - THROMBOTIC MICROANGIOPATHY [None]
  - VENOOCCLUSIVE DISEASE [None]
